FAERS Safety Report 7372276-2 (Version None)
Quarter: 2011Q1

REPORT INFORMATION
  Report Type: 
  Country: None (occurrence: None)
  Receive Date: 20110324
  Receipt Date: 20110318
  Transmission Date: 20110831
  Serious: Yes (Death)
  Sender: FDA-Public Use
  Company Number: A0907452A

PATIENT
  Age: 51 Year
  Sex: Female
  Weight: 66 kg

DRUGS (8)
  1. REVATIO [Concomitant]
     Dosage: 20MG THREE TIMES PER DAY
  2. FLOLAN [Suspect]
     Route: 065
     Dates: start: 20090330
  3. LISINOPRIL [Concomitant]
     Dosage: 5MG PER DAY
  4. WARFARIN [Concomitant]
     Dosage: 2.5MG PER DAY
  5. LASIX [Concomitant]
     Dosage: 40MG PER DAY
  6. PREDNISONE [Concomitant]
     Dosage: 20MG PER DAY
  7. VICODIN [Concomitant]
  8. PRILOSEC [Concomitant]
     Dosage: 20MG PER DAY

REACTIONS (1)
  - DISEASE PROGRESSION [None]
